FAERS Safety Report 13918542 (Version 3)
Quarter: 2017Q4

REPORT INFORMATION
  Report Type: Report from Study
  Country: US (occurrence: US)
  Receive Date: 20170829
  Receipt Date: 20171108
  Transmission Date: 20180320
  Serious: No
  Sender: FDA-Public Use
  Company Number: US-ALLERGAN-1735109US

PATIENT
  Age: 29 Year
  Sex: Male
  Weight: 97.7 kg

DRUGS (4)
  1. BLINDED MK-8031 60MG TAB [Suspect]
     Active Substance: ATOGEPANT
     Indication: MIGRAINE
     Dosage: UNK
     Dates: start: 20170613
  2. BLINDED MK-8031 30MG TAB [Suspect]
     Active Substance: ATOGEPANT
     Indication: MIGRAINE
     Dosage: UNK
     Dates: start: 20170613
  3. ADVIL [Concomitant]
     Active Substance: IBUPROFEN
     Indication: MIGRAINE
     Dosage: 200 MG, PRN
     Route: 048
     Dates: start: 2014
  4. BLINDED PLACEBO [Suspect]
     Active Substance: INVESTIGATIONAL PRODUCT
     Indication: MIGRAINE
     Dosage: UNK
     Dates: start: 20170613

REACTIONS (1)
  - Aspartate aminotransferase increased [Recovered/Resolved]

NARRATIVE: CASE EVENT DATE: 20170811
